FAERS Safety Report 17400165 (Version 2)
Quarter: 2021Q4

REPORT INFORMATION
  Report Type: Spontaneous
  Country: CH (occurrence: CH)
  Receive Date: 20200211
  Receipt Date: 20211111
  Transmission Date: 20220303
  Serious: Yes (Hospitalization, Other)
  Sender: FDA-Public Use
  Company Number: CH-SM-2020-10526

PATIENT
  Age: 38 Year
  Sex: Male

DRUGS (14)
  1. LAMICTAL [Suspect]
     Active Substance: LAMOTRIGINE
     Indication: Product used for unknown indication
     Dosage: 200 MG, QD
     Route: 065
     Dates: start: 20191203, end: 20200117
  2. RISPERDAL [Suspect]
     Active Substance: RISPERIDONE
     Indication: Product used for unknown indication
     Dosage: 75 MG (2 W)
     Route: 065
     Dates: end: 20191210
  3. RISPERDAL [Suspect]
     Active Substance: RISPERIDONE
     Dosage: 75 MG (2 MONTH)
     Route: 065
     Dates: end: 20191210
  4. VALPROATE SODIUM [Suspect]
     Active Substance: VALPROATE SODIUM
     Indication: Product used for unknown indication
     Dosage: 1300 MG, QD
     Route: 065
     Dates: start: 20191203, end: 20191210
  5. VALPROATE SODIUM [Suspect]
     Active Substance: VALPROATE SODIUM
     Dosage: 1500 MG, QD
     Route: 065
     Dates: end: 20191203
  6. VALPROATE SODIUM [Suspect]
     Active Substance: VALPROATE SODIUM
     Dosage: 1150 MG, QD
     Route: 065
     Dates: start: 20191210, end: 20191216
  7. VALPROATE SODIUM [Suspect]
     Active Substance: VALPROATE SODIUM
     Dosage: 1000 MG, QD
     Route: 065
     Dates: start: 20191216, end: 20200102
  8. VALPROATE SODIUM [Suspect]
     Active Substance: VALPROATE SODIUM
     Dosage: 800 MG, QD
     Route: 065
     Dates: start: 20200102, end: 20200109
  9. VALPROATE SODIUM [Suspect]
     Active Substance: VALPROATE SODIUM
     Dosage: 1000 MG, QD
     Route: 065
     Dates: start: 20200109, end: 20200115
  10. VALPROATE SODIUM [Suspect]
     Active Substance: VALPROATE SODIUM
     Dosage: 1300 MG, QD
     Route: 065
     Dates: start: 20200115, end: 20200129
  11. VALPROATE SODIUM [Suspect]
     Active Substance: VALPROATE SODIUM
     Dosage: 1500 MG, QD
     Route: 065
     Dates: start: 20200129
  12. LEVOMEPROMAZINE [Suspect]
     Active Substance: LEVOMEPROMAZINE
     Indication: Product used for unknown indication
     Dosage: 75 MG, QD
     Route: 065
     Dates: end: 20200116
  13. PRAZINE (PROMAZINE HYDROCHLORIDE) [Suspect]
     Active Substance: PROMAZINE HYDROCHLORIDE
     Indication: Product used for unknown indication
     Dosage: 200 MG, QD
     Route: 065
     Dates: start: 20200116
  14. AMLODIPINE [Concomitant]
     Active Substance: AMLODIPINE BESYLATE
     Indication: Product used for unknown indication
     Dosage: UNK
     Route: 065

REACTIONS (7)
  - Abnormal behaviour [Recovered/Resolved]
  - Extrapyramidal disorder [Recovered/Resolved]
  - Muscle spasms [Recovered/Resolved]
  - Chorea [Recovered/Resolved]
  - Petit mal epilepsy [Not Recovered/Not Resolved]
  - Antipsychotic drug level above therapeutic [Recovered/Resolved]
  - Withdrawal syndrome [Recovered/Resolved]

NARRATIVE: CASE EVENT DATE: 20191101
